FAERS Safety Report 22152679 (Version 1)
Quarter: 2023Q1

REPORT INFORMATION
  Report Type: Spontaneous
  Country: JP (occurrence: JP)
  Receive Date: 20230329
  Receipt Date: 20230329
  Transmission Date: 20230417
  Serious: Yes (Other)
  Sender: FDA-Public Use
  Company Number: JP-ferring-EVA202300291FERRINGPH

PATIENT

DRUGS (1)
  1. DESMOPRESSIN ACETATE [Suspect]
     Active Substance: DESMOPRESSIN ACETATE
     Indication: Product used for unknown indication
     Dosage: 30 UG, 2 TIMES DAILY
     Route: 065

REACTIONS (3)
  - Gastrostomy [Unknown]
  - Gastric fluid analysis abnormal [Unknown]
  - Wrong technique in product usage process [Unknown]
